FAERS Safety Report 7506539-4 (Version None)
Quarter: 2011Q2

REPORT INFORMATION
  Report Type: 
  Country: None (occurrence: None)
  Receive Date: 20110526
  Receipt Date: 20110519
  Transmission Date: 20111010
  Serious: Yes (Hospitalization, Other)
  Sender: FDA-Public Use
  Company Number: US-MERCK-1003USA00423

PATIENT
  Age: 55 Year
  Sex: Female
  Weight: 70 kg

DRUGS (19)
  1. VICODIN [Concomitant]
     Route: 065
  2. ASPIRIN [Concomitant]
     Route: 065
  3. DETROL LA [Concomitant]
     Route: 065
  4. NICODERM [Concomitant]
     Route: 065
  5. NEPHROCAPS [Concomitant]
     Route: 065
  6. DICYCLOMINE HYDROCHLORIDE [Concomitant]
     Route: 065
  7. GLIPIZIDE [Concomitant]
     Route: 065
  8. SPIRIVA [Concomitant]
     Route: 065
  9. LEVOTHROID [Concomitant]
     Route: 065
  10. ELAVIL [Concomitant]
     Route: 048
  11. CYMBALTA [Concomitant]
     Route: 065
  12. SINGULAIR [Concomitant]
     Route: 048
  13. SKELAXIN [Concomitant]
     Route: 065
  14. ALPRAZOLAM [Concomitant]
     Route: 065
  15. SLOW MAG [Concomitant]
     Route: 065
  16. TEGRETOL [Concomitant]
     Route: 065
  17. FOSAMAX [Suspect]
     Route: 048
     Dates: start: 20060401, end: 20060801
  18. FLOVENT [Concomitant]
     Route: 065
  19. NEURONTIN [Concomitant]
     Route: 065

REACTIONS (76)
  - BACK DISORDER [None]
  - DYSPEPSIA [None]
  - SYNCOPE [None]
  - PALPITATIONS [None]
  - DYSPNOEA PAROXYSMAL NOCTURNAL [None]
  - SLEEP APNOEA SYNDROME [None]
  - OSTEOPENIA [None]
  - ORAL CANDIDIASIS [None]
  - NOCTURIA [None]
  - BONE DISORDER [None]
  - ARTHRALGIA [None]
  - EAR PAIN [None]
  - NIGHT SWEATS [None]
  - MUSCULAR WEAKNESS [None]
  - HYPOMAGNESAEMIA [None]
  - URINARY TRACT INFECTION [None]
  - THROMBOCYTOSIS [None]
  - OSTEOMYELITIS [None]
  - SCHIZOID PERSONALITY DISORDER [None]
  - DEHYDRATION [None]
  - VOCAL CORD DISORDER [None]
  - TREATMENT NONCOMPLIANCE [None]
  - SCHIZOPHRENIA [None]
  - DYSPHONIA [None]
  - NAUSEA [None]
  - EATING DISORDER [None]
  - GASTROOESOPHAGEAL REFLUX DISEASE [None]
  - FALSE POSITIVE INVESTIGATION RESULT [None]
  - BRONCHOSPASM [None]
  - HALLUCINATION [None]
  - LUNG NEOPLASM MALIGNANT [None]
  - WEIGHT DECREASED [None]
  - TOOTH DISORDER [None]
  - SPINAL OSTEOARTHRITIS [None]
  - LOCALISED INFECTION [None]
  - FALL [None]
  - DIARRHOEA [None]
  - HYPOALBUMINAEMIA [None]
  - PNEUMONIA [None]
  - ABSCESS [None]
  - PYREXIA [None]
  - BURSITIS [None]
  - ORAL DISORDER [None]
  - LYMPH NODE PALPABLE [None]
  - IMPAIRED HEALING [None]
  - EPSTEIN-BARR VIRAEMIA [None]
  - EMPHYSEMA [None]
  - DENTAL CARIES [None]
  - FOCAL NODULAR HYPERPLASIA [None]
  - ATELECTASIS [None]
  - ACUTE RESPIRATORY FAILURE [None]
  - BRONCHITIS CHRONIC [None]
  - OEDEMA PERIPHERAL [None]
  - CONFUSIONAL STATE [None]
  - TOOTHACHE [None]
  - TOOTH FRACTURE [None]
  - JOINT INJURY [None]
  - FISTULA [None]
  - FATIGUE [None]
  - DYSURIA [None]
  - INCREASED TENDENCY TO BRUISE [None]
  - HEAD INJURY [None]
  - HAEMATURIA [None]
  - CHRONIC OBSTRUCTIVE PULMONARY DISEASE [None]
  - STOMATITIS [None]
  - SARCOIDOSIS [None]
  - ADVERSE DRUG REACTION [None]
  - OSTEONECROSIS OF JAW [None]
  - CHEST PAIN [None]
  - DECREASED APPETITE [None]
  - RESTLESS LEGS SYNDROME [None]
  - CEREBROVASCULAR ACCIDENT [None]
  - INFECTION [None]
  - DIABETIC NEUROPATHY [None]
  - OSTEOARTHRITIS [None]
  - ALPHA HAEMOLYTIC STREPTOCOCCAL INFECTION [None]
